FAERS Safety Report 26177110 (Version 2)
Quarter: 2025Q4

REPORT INFORMATION
  Report Type: Report from Study
  Country: JP (occurrence: JP)
  Receive Date: 20251219
  Receipt Date: 20251225
  Transmission Date: 20260117
  Serious: Yes (Death, Life-Threatening, Hospitalization, Other)
  Sender: GENMAB
  Company Number: JP-GENMAB-2025-04157

PATIENT
  Age: 70 Year
  Sex: Female

DRUGS (2)
  1. EPKINLY [Suspect]
     Active Substance: EPCORITAMAB-BYSP
     Indication: Diffuse large B-cell lymphoma recurrent
     Dosage: 0.16 MILLIGRAM, SINGLE
     Route: 065
     Dates: start: 20250924, end: 20250924
  2. DEXAMETHASONE [Suspect]
     Active Substance: DEXAMETHASONE
     Indication: Prophylaxis
     Dosage: 16 MILLIGRAM/DAY, ON DAY 1 OF ADMINISTRATION OF EPKINLY, AT THE FIRST ADMINISTRATION IN CYCLE 1
     Route: 048
     Dates: start: 20250924, end: 20250924

REACTIONS (4)
  - Tumour lysis syndrome [Fatal]
  - Diffuse large B-cell lymphoma recurrent [Fatal]
  - Adverse event [Unknown]
  - Inappropriate schedule of product administration [Unknown]

NARRATIVE: CASE EVENT DATE: 20250924
